FAERS Safety Report 10191901 (Version 1)
Quarter: 2014Q2

REPORT INFORMATION
  Report Type: Report from Study
  Country: GB (occurrence: GB)
  Receive Date: 20140523
  Receipt Date: 20140523
  Transmission Date: 20141212
  Serious: Yes (Hospitalization)
  Sender: FDA-Public Use
  Company Number: GB-GLAXOSMITHKLINE-B0994929A

PATIENT
  Sex: 0

DRUGS (3)
  1. PAZOPANIB [Suspect]
     Indication: RENAL CELL CARCINOMA
     Route: 048
  2. PRADAXA [Concomitant]
     Dosage: 110MG TWICE PER DAY
     Route: 048
     Dates: start: 20140210
  3. BISOPROLOL [Concomitant]
     Route: 048
     Dates: start: 20140210

REACTIONS (1)
  - Pleural effusion [Recovered/Resolved]
